FAERS Safety Report 5001667-X (Version None)
Quarter: 2006Q2

REPORT INFORMATION
  Report Type: 
  Country: None (occurrence: None)
  Receive Date: 20060515
  Receipt Date: 20060505
  Transmission Date: 20061013
  Serious: Yes (Hospitalization)
  Sender: FDA-Public Use
  Company Number: DE-AVENTIS-200611320DE

PATIENT
  Age: 81 Year
  Sex: Male
  Weight: 57 kg

DRUGS (3)
  1. ARAVA [Suspect]
     Indication: RHEUMATOID ARTHRITIS
     Route: 048
     Dates: start: 20050630, end: 20060424
  2. DECORTIN-H [Concomitant]
     Indication: RHEUMATOID ARTHRITIS
     Route: 048
  3. FADUL [Concomitant]
     Indication: PROPHYLAXIS
     Route: 048

REACTIONS (5)
  - ANOREXIA [None]
  - ASTHENIA [None]
  - HEPATITIS CHOLESTATIC [None]
  - JAUNDICE [None]
  - WEIGHT DECREASED [None]
